FAERS Safety Report 9252272 (Version 3)
Quarter: 2013Q2

REPORT INFORMATION
  Report Type: Spontaneous
  Country: DE (occurrence: DE)
  Receive Date: 20130424
  Receipt Date: 20130624
  Transmission Date: 20140414
  Serious: Yes (Death, Other)
  Sender: FDA-Public Use
  Company Number: DE-ALEXION-A201300885

PATIENT
  Sex: Male

DRUGS (7)
  1. SOLIRIS 300MG [Suspect]
     Indication: HAEMOLYTIC URAEMIC SYNDROME
     Dosage: 900 MG, SINGLE
     Route: 042
  2. LEVETIRACETAM [Concomitant]
     Dosage: 500, UNK (2-0-2)
     Route: 048
  3. ACETYLSALICYLIC ACID [Concomitant]
     Dosage: 100, UNK (1-0-0)
     Route: 048
  4. AMLODIPINE [Concomitant]
     Route: 048
  5. BISOPROLOL [Concomitant]
     Dosage: 5 UNK, (1-0-1)
     Route: 048
  6. PANTOPRAZOLE [Concomitant]
     Dosage: 40, UNK (0-0-1)
     Route: 048
  7. TORASEMID [Concomitant]
     Dosage: 200 UNK (1/4-1/4-0)
     Route: 048

REACTIONS (9)
  - Sepsis [Fatal]
  - Respiratory failure [Not Recovered/Not Resolved]
  - Pulmonary oedema [Not Recovered/Not Resolved]
  - Cardiac hypertrophy [Not Recovered/Not Resolved]
  - Pleural effusion [Not Recovered/Not Resolved]
  - Pulmonary fibrosis [Not Recovered/Not Resolved]
  - Pleurisy [Not Recovered/Not Resolved]
  - Arteriosclerosis [Not Recovered/Not Resolved]
  - Lymphadenopathy mediastinal [Not Recovered/Not Resolved]
